FAERS Safety Report 25041765 (Version 1)
Quarter: 2025Q1

REPORT INFORMATION
  Report Type: Spontaneous
  Country: SB (occurrence: SB)
  Receive Date: 20250305
  Receipt Date: 20250305
  Transmission Date: 20250409
  Serious: Yes (Death, Hospitalization)
  Sender: NOVARTIS
  Company Number: SB-002147023-NVSC2025SB036718

PATIENT
  Sex: Female

DRUGS (1)
  1. GLIVEC [Suspect]
     Active Substance: IMATINIB MESYLATE
     Indication: Chronic myeloid leukaemia
     Route: 065

REACTIONS (4)
  - Cerebral haemorrhage [Fatal]
  - Headache [Fatal]
  - Altered state of consciousness [Fatal]
  - Thrombocytopenia [Fatal]
